FAERS Safety Report 15690637 (Version 1)
Quarter: 2018Q4

REPORT INFORMATION
  Report Type: Spontaneous
  Country: PT (occurrence: PT)
  Receive Date: 20181205
  Receipt Date: 20181205
  Transmission Date: 20190205
  Serious: Yes (Death)
  Sender: FDA-Public Use
  Company Number: PT-TEVA-2018-PT-982186

PATIENT
  Age: 65 Year
  Weight: 60 kg

DRUGS (2)
  1. GLUCOSE [Concomitant]
     Active Substance: DEXTROSE
     Dosage: DOCETAXEL 160MG / 500ML GLICOSE 5%
     Route: 042
  2. DOCETAXEL AUROVITAS [Suspect]
     Active Substance: DOCETAXEL
     Indication: BREAST CANCER
     Dosage: DOCETAXEL 160MG / 500ML GLICOSE 5%
     Route: 042
     Dates: start: 20181102, end: 20181107

REACTIONS (3)
  - Colitis [Fatal]
  - Pancytopenia [Fatal]
  - Pyrexia [Fatal]

NARRATIVE: CASE EVENT DATE: 20181102
